FAERS Safety Report 10027829 (Version 1)
Quarter: 2014Q1

REPORT INFORMATION
  Report Type: Spontaneous
  Country: JP (occurrence: JP)
  Receive Date: 20140321
  Receipt Date: 20140321
  Transmission Date: 20141002
  Serious: Yes (Hospitalization, Other)
  Sender: FDA-Public Use
  Company Number: JP-ROCHE-1365825

PATIENT
  Sex: Female

DRUGS (2)
  1. XELODA [Suspect]
     Indication: PRODUCT USED FOR UNKNOWN INDICATION
     Route: 048
  2. TYKERB [Concomitant]
     Route: 048

REACTIONS (5)
  - Hepatic enzyme increased [Unknown]
  - Biliary dilatation [Unknown]
  - Bile duct stenosis [Unknown]
  - Jaundice [Unknown]
  - Cholelithiasis [Unknown]
